FAERS Safety Report 5485753-6 (Version None)
Quarter: 2007Q4

REPORT INFORMATION
  Report Type: 
  Country: None (occurrence: None)
  Receive Date: 20071015
  Receipt Date: 20071004
  Transmission Date: 20080405
  Serious: Yes (Death, Other)
  Sender: FDA-Public Use
  Company Number: JP-AMGEN-US194014

PATIENT
  Sex: Female

DRUGS (16)
  1. ENBREL [Suspect]
     Indication: RHEUMATOID ARTHRITIS
     Route: 058
     Dates: start: 20050818, end: 20060706
  2. PREDNISOLONE [Concomitant]
     Indication: RHEUMATOID ARTHRITIS
     Route: 048
     Dates: end: 20050801
  3. PREDNISOLONE [Concomitant]
     Route: 048
     Dates: start: 20050801
  4. CYTOTEC [Concomitant]
     Indication: PROPHYLAXIS AGAINST GASTROINTESTINAL ULCER
     Route: 048
  5. FAMOTIDINE [Concomitant]
     Indication: PROPHYLAXIS AGAINST GASTROINTESTINAL ULCER
     Route: 048
  6. BONALON [Concomitant]
     Indication: OSTEOPOROSIS
     Route: 048
  7. BUCILLAMINE [Concomitant]
     Dosage: UNKNOWN
     Dates: start: 20020101
  8. FOLIAMIN [Concomitant]
     Indication: FOLATE DEFICIENCY
     Route: 048
  9. MOBIC [Concomitant]
     Indication: RHEUMATOID ARTHRITIS
     Route: 048
     Dates: end: 20060216
  10. ISCOTIN [Concomitant]
     Indication: ANTIBIOTIC PROPHYLAXIS
     Route: 048
     Dates: start: 20050714
  11. MERISLON [Concomitant]
     Indication: DIZZINESS
     Route: 048
     Dates: end: 20060413
  12. PENICILLAMINE [Concomitant]
     Dosage: UNKNOWN
     Dates: start: 20020101
  13. MIZORIBINE [Concomitant]
     Dosage: UNKNOWN
     Dates: start: 20020101
  14. RHEUMATREX [Concomitant]
     Indication: RHEUMATOID ARTHRITIS
     Route: 048
     Dates: start: 20010801, end: 20050801
  15. RHEUMATREX [Concomitant]
     Route: 048
     Dates: start: 20050801
  16. PRAVASTATIN [Concomitant]
     Indication: HYPERLIPIDAEMIA
     Route: 048

REACTIONS (2)
  - COMPLETED SUICIDE [None]
  - DEPRESSION [None]
